FAERS Safety Report 24640104 (Version 1)
Quarter: 2024Q4

REPORT INFORMATION
  Report Type: Spontaneous
  Country: TR (occurrence: TR)
  Receive Date: 20241120
  Receipt Date: 20241120
  Transmission Date: 20250115
  Serious: Yes (Other)
  Sender: SANDOZ
  Company Number: TR-002147023-NVSC2024TR220647

PATIENT
  Age: 9 Decade
  Sex: Male

DRUGS (2)
  1. EXELON [Suspect]
     Active Substance: RIVASTIGMINE TARTRATE
     Indication: Dementia
     Dosage: UNK
     Route: 065
  2. EXELON [Suspect]
     Active Substance: RIVASTIGMINE TARTRATE
     Indication: Cerebral congestion

REACTIONS (6)
  - Blood pressure abnormal [Unknown]
  - Memory impairment [Unknown]
  - Speech disorder [Unknown]
  - Hypoaesthesia oral [Unknown]
  - Confusional state [Unknown]
  - Off label use [Unknown]
